FAERS Safety Report 9542000 (Version 1)
Quarter: 2013Q3

REPORT INFORMATION
  Report Type: Spontaneous
  Country: US (occurrence: US)
  Receive Date: 20130923
  Receipt Date: 20130923
  Transmission Date: 20140515
  Serious: Yes (Other)
  Sender: FDA-Public Use
  Company Number: US-BAYER-2013-109221

PATIENT
  Sex: 0

DRUGS (2)
  1. SORAFENIB (RAF KINASE INHIBITOR) [Suspect]
     Indication: PANCREATIC CARCINOMA METASTATIC
  2. ERLOTINIB [Suspect]
     Indication: PANCREATIC CARCINOMA METASTATIC

REACTIONS (2)
  - Thrombotic microangiopathy [None]
  - Off label use [None]
